FAERS Safety Report 7864692-7 (Version None)
Quarter: 2011Q4

REPORT INFORMATION
  Report Type: 
  Country: None (occurrence: None)
  Receive Date: 20111025
  Receipt Date: 20111003
  Transmission Date: 20120403
  Serious: Yes (Other)
  Sender: FDA-Public Use
  Company Number: OMPQ-NO-1110S-1265

PATIENT
  Weight: 2.454 kg

DRUGS (1)
  1. OMNIPAQUE 70 [Suspect]
     Indication: DEEP VEIN THROMBOSIS
     Dosage: 122 ML, SINGLE DOSE, TRANSPLACENTAL
     Route: 064

REACTIONS (5)
  - WEIGHT DECREASE NEONATAL [None]
  - PREMATURE BABY [None]
  - NEONATAL TACHYPNOEA [None]
  - CAESAREAN SECTION [None]
  - MATERNAL DRUGS AFFECTING FOETUS [None]
